FAERS Safety Report 6654613-7 (Version None)
Quarter: 2010Q1

REPORT INFORMATION
  Report Type: 
  Country: None (occurrence: None)
  Receive Date: 20100326
  Receipt Date: 20100318
  Transmission Date: 20100710
  Serious: Yes (Hospitalization)
  Sender: FDA-Public Use
  Company Number: US-ABBOTT-10P-163-0633709-00

PATIENT
  Sex: Male
  Weight: 95.34 kg

DRUGS (2)
  1. NIASPAN [Suspect]
     Indication: HIGH DENSITY LIPOPROTEIN DECREASED
     Dates: start: 20080101
  2. NIASPAN [Suspect]
     Dates: start: 20090820, end: 20090911

REACTIONS (5)
  - FLUSHING [None]
  - HEART RATE IRREGULAR [None]
  - HOT FLUSH [None]
  - MYOCARDIAL INFARCTION [None]
  - PRURITUS [None]
